FAERS Safety Report 7795965-4 (Version None)
Quarter: 2011Q4

REPORT INFORMATION
  Report Type: 
  Country: None (occurrence: None)
  Receive Date: 20111004
  Receipt Date: 20110922
  Transmission Date: 20120403
  Serious: Yes (Hospitalization)
  Sender: FDA-Public Use
  Company Number: US-BAYER-2011-006801

PATIENT
  Age: 30 Year
  Sex: Female
  Weight: 86.168 kg

DRUGS (9)
  1. AMITRIPTYLINE HCL [Concomitant]
     Dosage: UNK
     Route: 048
     Dates: start: 20041019, end: 20100720
  2. YASMIN [Suspect]
     Indication: PREMENSTRUAL SYNDROME
     Dosage: UNK
     Route: 048
     Dates: start: 20040101, end: 20050101
  3. IMIPRAMINE HCL [Concomitant]
     Dosage: UNK
     Dates: start: 20060526
  4. ELAVIL [Concomitant]
     Dosage: UNK
     Dates: start: 20060601
  5. PREDNISONE [Concomitant]
     Dosage: UNK
     Dates: start: 20060601
  6. DOXYCYCLINE [Concomitant]
     Dosage: UNK
     Dates: start: 20060601
  7. MEPRINIMINE [Concomitant]
     Dosage: UNK
     Dates: start: 20060601
  8. PREVACID [Concomitant]
     Dosage: 30 MG, UNK
     Route: 048
     Dates: start: 20060522
  9. LEXAPRO [Concomitant]
     Dosage: UNK
     Dates: start: 20060601

REACTIONS (6)
  - EMOTIONAL DISTRESS [None]
  - ANXIETY [None]
  - DEEP VEIN THROMBOSIS [None]
  - MENTAL DISORDER [None]
  - PULMONARY EMBOLISM [None]
  - PAIN [None]
